FAERS Safety Report 6222837-9 (Version None)
Quarter: 2009Q2

REPORT INFORMATION
  Report Type: 
  Country: None (occurrence: None)
  Receive Date: 20090611
  Receipt Date: 20090605
  Transmission Date: 20091009
  Serious: Yes (Hospitalization, Other)
  Sender: FDA-Public Use
  Company Number: B0568429A

PATIENT
  Sex: Female

DRUGS (10)
  1. PAXIL [Suspect]
     Indication: DRUG USE FOR UNKNOWN INDICATION
     Route: 048
  2. PAXIL [Suspect]
     Dosage: 560MG PER DAY
     Route: 048
  3. POLYPHARMACY [Suspect]
     Indication: DRUG USE FOR UNKNOWN INDICATION
  4. LEVOTOMIN [Concomitant]
     Indication: AGITATION
     Dosage: 15MG PER DAY
     Route: 048
     Dates: start: 20070929
  5. SERENACE [Concomitant]
     Dosage: 2.25MG PER DAY
     Route: 048
     Dates: start: 20090424
  6. MEILAX [Concomitant]
     Indication: ANXIETY
     Dosage: 2MG PER DAY
     Route: 048
     Dates: start: 20080414
  7. ZYPREXA [Concomitant]
     Indication: AGITATION
     Dosage: 5MG PER DAY
     Route: 048
     Dates: start: 20080801
  8. RESLIN [Concomitant]
     Indication: DEPRESSION
     Dosage: 50MG PER DAY
     Route: 048
     Dates: start: 20070929
  9. FLUNITRAZEPAM [Concomitant]
     Indication: INSOMNIA
     Dosage: 1MG PER DAY
     Route: 048
     Dates: start: 20070929
  10. SEDIEL [Concomitant]
     Indication: ANXIETY
     Dosage: 20MG PER DAY
     Route: 048
     Dates: start: 20070920

REACTIONS (2)
  - INTENTIONAL OVERDOSE [None]
  - SUICIDE ATTEMPT [None]
